FAERS Safety Report 25932505 (Version 1)
Quarter: 2025Q4

REPORT INFORMATION
  Report Type: Report from Study
  Country: US (occurrence: US)
  Receive Date: 20251017
  Receipt Date: 20251017
  Transmission Date: 20260117
  Serious: Yes (Other)
  Sender: ABBVIE
  Company Number: US-ABBVIE-6503578

PATIENT
  Age: 84 Year
  Sex: Female

DRUGS (1)
  1. VENETOCLAX [Suspect]
     Active Substance: VENETOCLAX
     Indication: Chronic lymphocytic leukaemia
     Dosage: TAKE 2 TABLET(S) BY MOUTH EVERY DAY. TAKE WHOLE WITH WATER AND A MEAL, AT APPROXIMATELY THE SAME ...
     Route: 048

REACTIONS (2)
  - Neoplasm malignant [Unknown]
  - Iron deficiency [Unknown]

NARRATIVE: CASE EVENT DATE: 20240101
